FAERS Safety Report 23364067 (Version 1)
Quarter: 2024Q1

REPORT INFORMATION
  Report Type: Spontaneous
  Country: CN (occurrence: CN)
  Receive Date: 20240104
  Receipt Date: 20240104
  Transmission Date: 20240410
  Serious: Yes (Other)
  Sender: FDA-Public Use
  Company Number: CN-BEIGENE-BGN-2023-015716

PATIENT

DRUGS (1)
  1. BRUKINSA [Suspect]
     Active Substance: ZANUBRUTINIB
     Indication: Diffuse large B-cell lymphoma
     Dosage: 160 MILLIGRAM, BID
     Route: 048

REACTIONS (5)
  - Immobile [Unknown]
  - Bedridden [Unknown]
  - Pain in extremity [Unknown]
  - Aphasia [Unknown]
  - Off label use [Unknown]
